FAERS Safety Report 25364634 (Version 2)
Quarter: 2025Q3

REPORT INFORMATION
  Report Type: Spontaneous
  Country: JP (occurrence: JP)
  Receive Date: 20250527
  Receipt Date: 20250711
  Transmission Date: 20251021
  Serious: Yes (Hospitalization)
  Sender: BAYER HEALTHCARE PHARMACEUTICALS INC.
  Company Number: JP-BAYER-2025A068872

PATIENT
  Age: 66 Year
  Sex: Male
  Weight: 79 kg

DRUGS (5)
  1. NUBEQA [Suspect]
     Active Substance: DAROLUTAMIDE
     Indication: Prostate cancer
     Dosage: 600 MG, BID
     Route: 048
     Dates: start: 20241211, end: 20250415
  2. DOCETAXEL [Suspect]
     Active Substance: DOCETAXEL
     Indication: Prostate cancer
     Dosage: DAILY DOSE 150 MG
     Route: 041
     Dates: start: 20250121, end: 20250121
  3. DOCETAXEL [Suspect]
     Active Substance: DOCETAXEL
     Indication: Prostate cancer
     Dosage: DAILY DOSE 150 MG
     Route: 041
     Dates: start: 20250219, end: 20250219
  4. DOCETAXEL [Suspect]
     Active Substance: DOCETAXEL
     Indication: Prostate cancer
     Dosage: DAILY DOSE 150 MG
     Route: 041
     Dates: start: 20250319, end: 20250319
  5. PREDONINE [Concomitant]
     Active Substance: PREDNISOLONE
     Route: 048

REACTIONS (1)
  - Interstitial lung disease [Recovering/Resolving]

NARRATIVE: CASE EVENT DATE: 20250415
